FAERS Safety Report 10742498 (Version 1)
Quarter: 2015Q1

REPORT INFORMATION
  Report Type: Spontaneous
  Country: IT (occurrence: IT)
  Receive Date: 20150127
  Receipt Date: 20150127
  Transmission Date: 20150721
  Serious: Yes (Hospitalization)
  Sender: FDA-Public Use
  Company Number: IT-BAYER-2015-010643

PATIENT
  Age: 44 Year
  Sex: Male

DRUGS (1)
  1. CARDIOASPIRIN [Suspect]
     Active Substance: ASPIRIN
     Indication: PERICARDITIS
     Dosage: DAILY DOSE 300 MG
     Route: 048
     Dates: start: 20141203

REACTIONS (3)
  - Dyspepsia [Recovered/Resolved]
  - Hyperchlorhydria [Recovered/Resolved]
  - Abdominal pain upper [Recovered/Resolved]

NARRATIVE: CASE EVENT DATE: 20141229
